FAERS Safety Report 5263209-3 (Version None)
Quarter: 2007Q1

REPORT INFORMATION
  Report Type: 
  Country: None (occurrence: None)
  Receive Date: 20061219
  Receipt Date: 20061017
  Transmission Date: 20070707
  Serious: No
  Sender: FDA-Public Use
  Company Number: 2006US002425

PATIENT
  Age: 78 Year
  Sex: Male
  Weight: 72.6 kg

DRUGS (1)
  1. VESICARE [Suspect]
     Indication: BENIGN PROSTATIC HYPERPLASIA
     Dosage: 5 MG, UID/QD, ORAL
     Route: 048
     Dates: start: 20060801, end: 20060818

REACTIONS (7)
  - CONSTIPATION [None]
  - DRY MOUTH [None]
  - DYSURIA [None]
  - NOCTURIA [None]
  - POLLAKIURIA [None]
  - URINE OUTPUT DECREASED [None]
  - VISION BLURRED [None]
